FAERS Safety Report 25856051 (Version 3)
Quarter: 2025Q4

REPORT INFORMATION
  Report Type: Spontaneous
  Country: EU (occurrence: EU)
  Receive Date: 20250928
  Receipt Date: 20251017
  Transmission Date: 20260119
  Serious: Yes (Other)
  Sender: BOEHRINGER INGELHEIM
  Company Number: EU-BoehringerIngelheim-2025-BI-098045

PATIENT
  Age: 73 Year
  Sex: Female
  Weight: 56 kg

DRUGS (3)
  1. SPESOLIMAB [Suspect]
     Active Substance: SPESOLIMAB
     Indication: Generalised pustular psoriasis
     Dates: start: 20231205, end: 20231205
  2. SPESOLIMAB [Suspect]
     Active Substance: SPESOLIMAB
  3. METHOTREXATE [Concomitant]
     Active Substance: METHOTREXATE
     Indication: Product used for unknown indication

REACTIONS (1)
  - Psoriasis [Recovered/Resolved]

NARRATIVE: CASE EVENT DATE: 20240201
